FAERS Safety Report 16332737 (Version 2)
Quarter: 2019Q2

REPORT INFORMATION
  Report Type: Spontaneous
  Country: US (occurrence: US)
  Receive Date: 20190520
  Receipt Date: 20190523
  Transmission Date: 20190711
  Serious: Yes (Death, Life-Threatening, Hospitalization, Other)
  Sender: FDA-Public Use
  Company Number: US-PFIZER INC-2019211959

PATIENT
  Age: 6 Week
  Sex: Male

DRUGS (6)
  1. AMPICILLIN SODIUM. [Suspect]
     Active Substance: AMPICILLIN SODIUM
     Indication: ESCHERICHIA SEPSIS
     Dosage: UNK
     Route: 042
  2. CEFTAZIDIME. [Concomitant]
     Active Substance: CEFTAZIDIME
     Indication: ESCHERICHIA SEPSIS
     Dosage: UNK
  3. GENTAMICIN. [Concomitant]
     Active Substance: GENTAMICIN
     Indication: ESCHERICHIA SEPSIS
     Dosage: UNK
     Route: 042
  4. CLINDAMYCIN. [Concomitant]
     Active Substance: CLINDAMYCIN
     Indication: ESCHERICHIA SEPSIS
     Dosage: UNK
  5. VANCOMYCIN [Concomitant]
     Active Substance: VANCOMYCIN
     Indication: ESCHERICHIA SEPSIS
     Dosage: UNK
  6. CEFOTAXIME [Concomitant]
     Active Substance: CEFOTAXIME SODIUM
     Indication: ESCHERICHIA SEPSIS
     Dosage: UNK

REACTIONS (1)
  - Toxic epidermal necrolysis [Fatal]
